FAERS Safety Report 5229011-3 (Version None)
Quarter: 2007Q1

REPORT INFORMATION
  Report Type: 
  Country: None (occurrence: None)
  Receive Date: 20070131
  Receipt Date: 20070122
  Transmission Date: 20070707
  Serious: Yes (Hospitalization)
  Sender: FDA-Public Use
  Company Number: MEDI-0005278

PATIENT
  Age: 17 Day
  Sex: Female

DRUGS (1)
  1. SYNAGIS [Suspect]
     Indication: CARDIAC FAILURE CONGESTIVE
     Dosage: 1 IN 1 M, INTRAMUSCULAR
     Route: 030
     Dates: start: 20061220, end: 20061220

REACTIONS (10)
  - CARDIAC FAILURE CONGESTIVE [None]
  - COUGH [None]
  - FEEDING DISORDER NEONATAL [None]
  - FEVER NEONATAL [None]
  - HYPOTONIA NEONATAL [None]
  - LETHARGY [None]
  - LOSS OF CONSCIOUSNESS [None]
  - NEONATAL DISORDER [None]
  - PALLOR [None]
  - VOMITING NEONATAL [None]
